FAERS Safety Report 12926487 (Version 1)
Quarter: 2016Q4

REPORT INFORMATION
  Report Type: Spontaneous
  Country: DE (occurrence: DE)
  Receive Date: 20161109
  Receipt Date: 20161109
  Transmission Date: 20170207
  Serious: Yes (Death)
  Sender: FDA-Public Use
  Company Number: DE-TEVA-708039GER

PATIENT
  Age: 15 Year
  Sex: Female
  Weight: 60 kg

DRUGS (2)
  1. QUETIAPIN [Suspect]
     Active Substance: QUETIAPINE
     Indication: SUICIDAL IDEATION
     Dosage: 29G QUETIAPIN + 700MG MIRTAZAPIN ON SUICIDAL INTENT
     Route: 048
     Dates: start: 20160921
  2. MIRTAZAPIN [Suspect]
     Active Substance: MIRTAZAPINE
     Indication: SUICIDAL IDEATION
     Dosage: 29G QUETIAPIN + 700 MG MIRTAZAPIN ON SUICIDAL INTENT
     Route: 048
     Dates: start: 20160921

REACTIONS (2)
  - Completed suicide [Fatal]
  - Acute respiratory distress syndrome [Fatal]

NARRATIVE: CASE EVENT DATE: 20160924
